FAERS Safety Report 7600160 (Version 3)
Quarter: 2013Q3

REPORT INFORMATION
  Report Type: Spontaneous
  Country: US (occurrence: US)
  Receive Date: 20100921
  Receipt Date: 20130816
  Transmission Date: 20140515
  Serious: Yes (Hospitalization)
  Sender: FDA-Public Use
  Company Number: US-ELI_LILLY_AND_COMPANY-US201009004474

PATIENT
  Age: 29 Year
  Sex: Female

DRUGS (4)
  1. CYMBALTA [Suspect]
     Indication: PAIN
     Dosage: 60 MG, DAILY (1/D)
  2. OXYCODONE [Concomitant]
  3. IBUPROFEN [Concomitant]
  4. CONTRACEPTIVES [Concomitant]

REACTIONS (2)
  - Hepatic necrosis [Recovering/Resolving]
  - Renal injury [Recovering/Resolving]
